FAERS Safety Report 5507549-9 (Version None)
Quarter: 2007Q4

REPORT INFORMATION
  Report Type: 
  Country: None (occurrence: None)
  Receive Date: 20071105
  Receipt Date: 20071105
  Transmission Date: 20080405
  Serious: Yes (Hospitalization)
  Sender: FDA-Public Use
  Company Number: None

PATIENT
  Sex: Male
  Weight: 55.6 kg

DRUGS (1)
  1. ASPIRIN [Suspect]
     Indication: MUSCULOSKELETAL PAIN
     Dosage: 1 TABLET   2-3 TIMES PER DAY  PO
     Route: 048

REACTIONS (14)
  - BALANCE DISORDER [None]
  - DECREASED APPETITE [None]
  - DIZZINESS [None]
  - DUODENAL ULCER [None]
  - DYSPNOEA [None]
  - FALL [None]
  - GASTROINTESTINAL HAEMORRHAGE [None]
  - HAEMATOCRIT DECREASED [None]
  - LOSS OF CONSCIOUSNESS [None]
  - MELAENA [None]
  - PALLOR [None]
  - PYREXIA [None]
  - VERTIGO [None]
  - VOMITING [None]
